FAERS Safety Report 4621390-0 (Version None)
Quarter: 2005Q1

REPORT INFORMATION
  Report Type: 
  Country: None (occurrence: None)
  Receive Date: 20050323
  Receipt Date: 20050307
  Transmission Date: 20050727
  Serious: Yes (Other)
  Sender: FDA-Public Use
  Company Number: 602107

PATIENT
  Age: 28 Year
  Sex: Male

DRUGS (1)
  1. RECOMBINATE [Suspect]
     Indication: FACTOR VIII DEFICIENCY
     Dosage: 250 IU; INTRAVENOUS
     Route: 042
     Dates: start: 20040526

REACTIONS (1)
  - INHIBITING ANTIBODIES [None]
